FAERS Safety Report 9218230 (Version 1)
Quarter: 2013Q2

REPORT INFORMATION
  Report Type: Spontaneous
  Country: CA (occurrence: CA)
  Receive Date: 20130408
  Receipt Date: 20130408
  Transmission Date: 20140414
  Serious: Yes (Death)
  Sender: FDA-Public Use
  Company Number: CA-009507513-1304CAN003202

PATIENT
  Sex: Male
  Weight: 88.44 kg

DRUGS (1)
  1. SINGULAIR [Suspect]
     Indication: ANGIOEDEMA
     Dosage: 10 MG, UNK
     Dates: start: 20100123, end: 20100320

REACTIONS (1)
  - Completed suicide [Fatal]
